FAERS Safety Report 6390879-9 (Version None)
Quarter: 2009Q4

REPORT INFORMATION
  Report Type: 
  Country: None (occurrence: None)
  Receive Date: 20091003
  Receipt Date: 20090916
  Transmission Date: 20100525
  Serious: Yes (Other)
  Sender: FDA-Public Use
  Company Number: 2009AL006109

PATIENT
  Age: 34 Year
  Sex: Male

DRUGS (1)
  1. LIDOCAINE HYDROCHLORIDE 2% [Suspect]
     Indication: SURGERY
     Dosage: 2 ML; SC
     Route: 058
     Dates: start: 20090901, end: 20090901

REACTIONS (2)
  - ANAPHYLACTIC REACTION [None]
  - SHOCK [None]
